FAERS Safety Report 8217338-2 (Version None)
Quarter: 2012Q1

REPORT INFORMATION
  Report Type: 
  Country: None (occurrence: None)
  Receive Date: 20120319
  Receipt Date: 20120308
  Transmission Date: 20120608
  Serious: Yes (Death, Hospitalization)
  Sender: FDA-Public Use
  Company Number: KR-BAYER-2012-022581

PATIENT
  Age: 56 Year
  Sex: Female
  Weight: 58 kg

DRUGS (18)
  1. PERIDOL [Concomitant]
     Indication: ABDOMINAL PAIN
     Dosage: 5 MG DAILY
     Route: 042
     Dates: start: 20120212, end: 20120214
  2. DENOGAN [Concomitant]
     Indication: PYREXIA
     Dosage: 1 G DAILY
     Route: 042
     Dates: start: 20120211, end: 20120216
  3. IRCODON [Concomitant]
     Indication: ABDOMINAL PAIN
     Dosage: 5 MG, DAILY
     Route: 048
     Dates: start: 20120211, end: 20120211
  4. CEFOTAXIME [Concomitant]
     Indication: PYREXIA
     Dosage: 1 G, DAILY
     Route: 042
     Dates: start: 20120213, end: 20120214
  5. NEWFENAC [Concomitant]
     Indication: PYREXIA
     Dosage: 90 MG DAILY
     Route: 042
     Dates: start: 20120214, end: 20120214
  6. MACPERAN [Concomitant]
     Indication: NAUSEA
     Dosage: 10 MG DAILY
     Route: 042
     Dates: start: 20120210, end: 20120213
  7. PHENIRAMIN [Concomitant]
     Indication: PREMEDICATION
     Dosage: 4 MG DAILY
     Route: 042
     Dates: start: 20120214, end: 20120214
  8. NORPIN [Concomitant]
     Indication: HYPOTENSION
     Dosage: 20 MG DAILY
     Route: 042
     Dates: start: 20120215, end: 20120215
  9. BARACLUDE [Concomitant]
     Indication: HEPATITIS B
     Dosage: 0.5 MG, DAILY
     Route: 048
     Dates: start: 20120131, end: 20120215
  10. DURAGESIC-100 [Concomitant]
     Indication: ABDOMINAL PAIN
     Dosage: 2.1 MG, DAILY
     Dates: start: 20120209, end: 20120210
  11. CEFOTAXIME [Concomitant]
     Dosage: 2 G DAILY
     Route: 042
     Dates: start: 20120214, end: 20120216
  12. INVANZ [Concomitant]
     Indication: PYREXIA
     Dosage: 1 G DAILY
     Route: 042
     Dates: start: 20120215, end: 20120216
  13. DUPHALAC [Concomitant]
     Indication: CONSTIPATION
     Dosage: 300 ML, DAILY
     Route: 048
     Dates: start: 20120214, end: 20120214
  14. ULTRACET [Concomitant]
     Indication: ABDOMINAL PAIN
     Dosage: 2 DF DAILY
     Route: 048
     Dates: start: 20120209, end: 20120212
  15. NALOXONE [Concomitant]
     Indication: ABDOMINAL PAIN
     Dosage: 10 / 5MG DAILY
     Route: 048
     Dates: start: 20120210, end: 20120212
  16. NALOXONE [Concomitant]
     Indication: CONFUSIONAL STATE
     Dosage: 2 MG DAILY
     Route: 042
     Dates: start: 20120211, end: 20120212
  17. NEXAVAR [Suspect]
     Indication: HEPATIC NEOPLASM MALIGNANT
     Dosage: 400 MG, DAILY
     Route: 048
     Dates: start: 20120203, end: 20120209
  18. ATIVAN [Concomitant]
     Indication: ABDOMINAL PAIN
     Dosage: 2 MG, DAILY
     Route: 042
     Dates: start: 20120214, end: 20120214

REACTIONS (2)
  - ASTHENIA [None]
  - ACUTE HEPATIC FAILURE [None]
